FAERS Safety Report 8578015-1 (Version None)
Quarter: 2012Q3

REPORT INFORMATION
  Report Type: 
  Country: None (occurrence: None)
  Receive Date: 20120808
  Receipt Date: 20120724
  Transmission Date: 20120928
  Serious: Yes (Hospitalization)
  Sender: FDA-Public Use
  Company Number: ZA-ELI_LILLY_AND_COMPANY-ZA201208002039

PATIENT
  Age: 15 Year
  Sex: Female

DRUGS (2)
  1. SIMVOTIN [Concomitant]
     Indication: BLOOD CHOLESTEROL
     Dosage: 20 MG, EACH EVENING
     Route: 048
  2. HUMULIN N [Suspect]
     Indication: DIABETES MELLITUS
     Dosage: 22 U, EACH EVENING
     Route: 058

REACTIONS (4)
  - BLOOD GLUCOSE INCREASED [None]
  - HAEMOPTYSIS [None]
  - DIABETIC KETOACIDOSIS [None]
  - BLOOD PH DECREASED [None]
